FAERS Safety Report 5815986-8 (Version None)
Quarter: 2008Q3

REPORT INFORMATION
  Report Type: 
  Country: None (occurrence: None)
  Receive Date: 20080721
  Receipt Date: 20080710
  Transmission Date: 20090109
  Serious: Yes (Other)
  Sender: FDA-Public Use
  Company Number: PHHY2008BR13824

PATIENT
  Weight: 16 kg

DRUGS (3)
  1. TRILEPTAL [Suspect]
     Indication: EPILEPSY
     Dosage: 4 ML IN MORNING AND 4 ML AT NIGHT
     Route: 048
  2. BECLOMETHASONE AQUEOUS [Concomitant]
     Indication: ASTHMA
     Dosage: QD IN MORNING AND QD AT NIGHT
  3. ACETAMINOPHEN [Concomitant]

REACTIONS (9)
  - ASTHMA [None]
  - CONVULSION [None]
  - DECREASED APPETITE [None]
  - GASTROINTESTINAL INFECTION [None]
  - NAUSEA [None]
  - OROPHARYNGEAL PAIN [None]
  - PYREXIA [None]
  - VOMITING [None]
  - WHEEZING [None]
